FAERS Safety Report 5143250-1 (Version None)
Quarter: 2006Q4

REPORT INFORMATION
  Report Type: 
  Country: None (occurrence: None)
  Receive Date: 20061103
  Receipt Date: 20061013
  Transmission Date: 20070319
  Serious: Yes (Hospitalization, Other)
  Sender: FDA-Public Use
  Company Number: PHBS2006TR16977

PATIENT
  Age: 1 Day
  Sex: Female
  Weight: 1.85 kg

DRUGS (4)
  1. SANDIMMUNE [Suspect]
     Route: 064
  2. PREDNISOLONE [Concomitant]
     Route: 064
  3. IMMUNOGLOBULINS [Concomitant]
     Route: 064
  4. AMPICILLIN SODIUM/SULBACTAM SODIUM [Concomitant]
     Route: 064

REACTIONS (12)
  - ANAL DILATATION [None]
  - ANTIMICROBIAL SUSCEPTIBILITY TEST RESISTANT [None]
  - B-LYMPHOCYTE COUNT DECREASED [None]
  - CONTINUOUS POSITIVE AIRWAY PRESSURE [None]
  - DRUG EXPOSURE DURING PREGNANCY [None]
  - NEONATAL ASPIRATION [None]
  - PREMATURE BABY [None]
  - PYREXIA [None]
  - RESPIRATORY DISTRESS [None]
  - SEPSIS NEONATAL [None]
  - SMALL FOR DATES BABY [None]
  - TACHYPNOEA [None]
